FAERS Safety Report 8444277-4 (Version None)
Quarter: 2012Q2

REPORT INFORMATION
  Report Type: 
  Country: None (occurrence: None)
  Receive Date: 20120323
  Receipt Date: 20110617
  Transmission Date: 20120825
  Serious: Yes (Hospitalization)
  Sender: FDA-Public Use
  Company Number: 163-21880-11053042

PATIENT
  Age: 67 Year
  Sex: Female

DRUGS (5)
  1. LEVOTHYROXINE SODIUM [Concomitant]
  2. PINDOLOL [Concomitant]
  3. REVLIMID [Suspect]
     Indication: MULTIPLE MYELOMA
     Dosage: 25 MG, 21/28 DAYS, PO; PO
     Route: 048
     Dates: start: 20110412, end: 20110502
  4. REVLIMID [Suspect]
     Indication: MULTIPLE MYELOMA
     Dosage: 25 MG, 21/28 DAYS, PO; PO
     Route: 048
     Dates: start: 20110603
  5. ASPIRIN [Concomitant]

REACTIONS (2)
  - CLOSTRIDIAL INFECTION [None]
  - WHITE BLOOD CELL COUNT DECREASED [None]
